FAERS Safety Report 26194172 (Version 1)
Quarter: 2025Q4

REPORT INFORMATION
  Report Type: Spontaneous
  Country: US (occurrence: US)
  Receive Date: 20251224
  Receipt Date: 20251224
  Transmission Date: 20260118
  Serious: No
  Sender: Kenvue
  Company Number: US-KENVUE-20251109735

PATIENT
  Sex: Female

DRUGS (20)
  1. IMODIUM [Suspect]
     Active Substance: LOPERAMIDE HYDROCHLORIDE
     Indication: Diarrhoea
     Dosage: UNK
     Route: 065
  2. TYVASO DPI [Concomitant]
     Active Substance: TREPROSTINIL
     Indication: Pulmonary arterial hypertension
     Dosage: 48 MICROGRAM, FOUR TIME A DAY
     Dates: end: 2025
  3. TYVASO DPI [Concomitant]
     Active Substance: TREPROSTINIL
     Dosage: 32 MICROGRAM, FOUR TIME A DAY
     Dates: start: 2025, end: 2025
  4. TYVASO DPI [Concomitant]
     Active Substance: TREPROSTINIL
     Dosage: 32 MICROGRAM, FOUR TIME A DAY
  5. TYVASO DPI [Concomitant]
     Active Substance: TREPROSTINIL
     Dosage: 64 MICROGRAM
  6. TYVASO DPI [Concomitant]
     Active Substance: TREPROSTINIL
     Dosage: 48 MICROGRAM, FOUR TIME A DAY
     Dates: start: 2025, end: 2025
  7. TYVASO DPI [Concomitant]
     Active Substance: TREPROSTINIL
     Dosage: UNK UNK, FOUR TIME A DAY
  8. ORENITRAM [Concomitant]
     Active Substance: TREPROSTINIL
     Indication: Pulmonary arterial hypertension
     Dosage: 0.375 MILLIGRAM, THRICE A DAY
     Route: 061
     Dates: start: 2025, end: 2025
  9. ORENITRAM [Concomitant]
     Active Substance: TREPROSTINIL
     Dosage: 0.625 MILLIGRAM, THRICE A DAY
     Route: 061
     Dates: start: 2025, end: 2025
  10. ORENITRAM [Concomitant]
     Active Substance: TREPROSTINIL
     Dosage: 0.875 MILLIGRAM, THRICE A DAY
     Route: 061
     Dates: start: 2025, end: 2025
  11. ORENITRAM [Concomitant]
     Active Substance: TREPROSTINIL
     Dosage: 1.125 MILLIGRAM, THRICE A DAY
     Route: 061
     Dates: start: 2025, end: 2025
  12. ORENITRAM [Concomitant]
     Active Substance: TREPROSTINIL
     Dosage: 1.375 MILLIGRAM, THRICE A DAY
     Route: 061
     Dates: start: 2025, end: 2025
  13. ORENITRAM [Concomitant]
     Active Substance: TREPROSTINIL
     Dosage: 1.5 MILLIGRAM, THRICE A DAY
     Route: 061
     Dates: start: 2025, end: 2025
  14. ORENITRAM [Concomitant]
     Active Substance: TREPROSTINIL
     Dosage: 0.25 MILLIGRAM, THRICE A DAY
     Route: 061
     Dates: start: 2025, end: 2025
  15. ORENITRAM [Concomitant]
     Active Substance: TREPROSTINIL
     Dosage: 1.25 MILLIGRAM, THRICE A DAY
     Route: 061
     Dates: start: 2025
  16. ORENITRAM [Concomitant]
     Active Substance: TREPROSTINIL
     Dosage: UNK
     Route: 061
  17. ORENITRAM [Concomitant]
     Active Substance: TREPROSTINIL
     Dosage: 0.125 MILLIGRAM, THRICE A DAY
     Route: 061
  18. WINREVAIR [Concomitant]
     Active Substance: SOTATERCEPT-CSRK
     Indication: Product used for unknown indication
     Dosage: UNK
     Route: 065
  19. ADEMPAS [Concomitant]
     Active Substance: RIOCIGUAT
     Indication: Product used for unknown indication
     Dosage: UNK
     Route: 065
  20. OPSUMIT [Concomitant]
     Active Substance: MACITENTAN
     Indication: Product used for unknown indication
     Route: 065

REACTIONS (1)
  - Drug ineffective [Unknown]

NARRATIVE: CASE EVENT DATE: 20250101
